FAERS Safety Report 4562240-0 (Version None)
Quarter: 2005Q1

REPORT INFORMATION
  Report Type: 
  Country: None (occurrence: None)
  Receive Date: 20050124
  Receipt Date: 20041130
  Transmission Date: 20050727
  Serious: Yes (Other)
  Sender: FDA-Public Use
  Company Number: US-2004-037426

PATIENT
  Age: 39 Year
  Sex: Female

DRUGS (3)
  1. MAGNEVIST [Suspect]
     Indication: NUCLEAR MAGNETIC RESONANCE IMAGING BRAIN
     Dosage: SEE IMAGE
     Route: 042
     Dates: start: 20010701, end: 20010701
  2. MAGNEVIST [Suspect]
     Indication: NUCLEAR MAGNETIC RESONANCE IMAGING BRAIN
     Dosage: SEE IMAGE
     Route: 042
     Dates: start: 20011101, end: 20011101
  3. MAGNEVIST [Suspect]
     Indication: NUCLEAR MAGNETIC RESONANCE IMAGING BRAIN
     Dosage: SEE IMAGE
     Route: 042
     Dates: start: 20030101, end: 20030101

REACTIONS (2)
  - COOMBS NEGATIVE HAEMOLYTIC ANAEMIA [None]
  - URINE ARSENIC INCREASED [None]
